FAERS Safety Report 16568851 (Version 1)
Quarter: 2019Q3

REPORT INFORMATION
  Report Type: Spontaneous
  Country: DE (occurrence: DE)
  Receive Date: 20190713
  Receipt Date: 20190713
  Transmission Date: 20191004
  Serious: Yes (Hospitalization)
  Sender: FDA-Public Use
  Company Number: DE-TEVA-2019-DE-1076054

PATIENT
  Age: 83 Year
  Sex: Female

DRUGS (12)
  1. TORASEMID [Suspect]
     Active Substance: TORSEMIDE
     Dosage: 20 MG, 1-0-0-0
     Route: 065
  2. RAMIPRIL. [Concomitant]
     Active Substance: RAMIPRIL
     Dosage: 2.5 MG, 0.5-0-0-0
  3. ATARAX [Concomitant]
     Active Substance: HYDROXYZINE HYDROCHLORIDE
     Dosage: 25 MG, 0-0-0-1
  4. ELIQUIS [Concomitant]
     Active Substance: APIXABAN
     Dosage: 5 MG, 1-0-1-0
  5. LIBRASAN (BUPRENORPHINE) [Suspect]
     Active Substance: BUPRENORPHINE
     Route: 062
  6. DIGITOXIN [Concomitant]
     Active Substance: DIGITOXIN
     Dosage: 0.05 MG, 1-0-0-0 (SAT U. SO PAUSE)
  7. MAGNESIUM [Concomitant]
     Active Substance: MAGNESIUM
     Dosage: 150 MG, 1-0-1-0
  8. PANTOPRAZOL [Concomitant]
     Active Substance: PANTOPRAZOLE SODIUM
     Dosage: 40 MG, NEED
  9. SALMETEROL/FLUTICASON [Concomitant]
     Active Substance: FLUTICASONE PROPIONATE\SALMETEROL XINAFOATE
     Dosage: 50|250 ?G, 1-0-1-0
  10. BENZBROMARON [Suspect]
     Active Substance: BENZBROMARONE
     Dosage: 100 MG, 1-0-0-0
     Route: 065
  11. MACROGOL [Concomitant]
     Active Substance: POLYETHYLENE GLYCOLS
     Dosage: 1-0-0-0
  12. SPIRIVA [Concomitant]
     Active Substance: TIOTROPIUM BROMIDE MONOHYDRATE
     Dosage: 18 ?G, 1-0-0-0

REACTIONS (3)
  - Vomiting [Unknown]
  - Nausea [Unknown]
  - Dehydration [Unknown]
